FAERS Safety Report 6533558-7 (Version None)
Quarter: 2010Q1

REPORT INFORMATION
  Report Type: 
  Country: None (occurrence: None)
  Receive Date: 20100108
  Receipt Date: 20100108
  Transmission Date: 20100710
  Serious: No
  Sender: FDA-Public Use
  Company Number: None

PATIENT
  Age: 58 Year
  Sex: Female

DRUGS (1)
  1. ZICAM NO DRIP LIQUID NASAL GEL [Suspect]
     Dosage: 15 MILLILITERS BOTTLE
     Dates: start: 20091028, end: 20091028

REACTIONS (4)
  - AGEUSIA [None]
  - ANOSMIA [None]
  - BURNING SENSATION [None]
  - RHINALGIA [None]
